FAERS Safety Report 10146407 (Version 1)
Quarter: 2014Q2

REPORT INFORMATION
  Report Type: Spontaneous
  Country: US (occurrence: None)
  Receive Date: 20140430
  Receipt Date: 20140430
  Transmission Date: 20141212
  Serious: No
  Sender: FDA-Public Use
  Company Number: None

PATIENT
  Age: 87 Year
  Sex: Male

DRUGS (1)
  1. APAP 500MG/DIPHEN 25MG [Suspect]
     Indication: SLEEP DISORDER
     Dosage: 1 CAP, AT BEDTIME, TAKEN BY MOUTH
     Route: 048
     Dates: start: 20140428

REACTIONS (1)
  - Drug ineffective [None]
